FAERS Safety Report 9939308 (Version 1)
Quarter: 2014Q1

REPORT INFORMATION
  Report Type: Spontaneous
  Country: US (occurrence: US)
  Receive Date: 20140303
  Receipt Date: 20140303
  Transmission Date: 20141002
  Serious: Yes (Hospitalization)
  Sender: FDA-Public Use
  Company Number: US-ABBVIE-13P-163-1037699-00

PATIENT
  Age: 21 Year
  Sex: Female
  Weight: 77.18 kg

DRUGS (11)
  1. HUMIRA [Suspect]
     Indication: CROHN^S DISEASE
     Route: 058
     Dates: start: 20120512, end: 20121222
  2. XANAX [Concomitant]
     Indication: PRODUCT USED FOR UNKNOWN INDICATION
  3. INTUNIV [Concomitant]
     Indication: ATTENTION DEFICIT/HYPERACTIVITY DISORDER
     Dosage: AT BEDTIME
  4. CULTURELLE [Concomitant]
     Indication: COLITIS ULCERATIVE
  5. ALTAVERA [Concomitant]
     Indication: COLITIS ULCERATIVE
  6. ALTAVERA [Concomitant]
     Indication: OFF LABEL USE
  7. ZANTAC [Concomitant]
     Indication: PRODUCT USED FOR UNKNOWN INDICATION
  8. TRAMADOL [Concomitant]
     Indication: CROHN^S DISEASE
     Dosage: TAKEN WITH TYLENOL, AS NEEDED
  9. TYLENOL [Concomitant]
     Indication: CROHN^S DISEASE
     Dosage: TAKEN WITH TRAMADOL, AS NEEDED
  10. DOMPERIDONE [Concomitant]
     Indication: IMPAIRED GASTRIC EMPTYING
     Dosage: WITH MEALS, AS NEEDED
  11. BOTOX [Concomitant]
     Indication: IMPAIRED GASTRIC EMPTYING

REACTIONS (11)
  - Abdominal pain [Unknown]
  - Nausea [Unknown]
  - Vomiting [Unknown]
  - Abdominal pain [Not Recovered/Not Resolved]
  - Nausea [Not Recovered/Not Resolved]
  - Vomiting [Not Recovered/Not Resolved]
  - Anorectal disorder [Not Recovered/Not Resolved]
  - Impaired healing [Not Recovered/Not Resolved]
  - Crohn^s disease [Not Recovered/Not Resolved]
  - Anorectal discomfort [Unknown]
  - Frequent bowel movements [Unknown]
